FAERS Safety Report 11310244 (Version 1)
Quarter: 2015Q3

REPORT INFORMATION
  Report Type: Spontaneous
  Country: LT (occurrence: LT)
  Receive Date: 20150724
  Receipt Date: 20150724
  Transmission Date: 20151125
  Serious: Yes (Hospitalization)
  Sender: FDA-Public Use
  Company Number: LT-SA-2015SA106292

PATIENT
  Age: 46 Year
  Sex: Female
  Weight: 72 kg

DRUGS (2)
  1. RELANIUM [Suspect]
     Active Substance: DIAZEPAM
     Indication: ANXIETY
     Dosage: AT THE SAME TIME PATIENT TOOK 18-20 TABLETS.
     Route: 048
     Dates: start: 20150629, end: 20150629
  2. STILNOX [Suspect]
     Active Substance: ZOLPIDEM TARTRATE
     Indication: ANXIETY
     Route: 048
     Dates: start: 20150629, end: 20150629

REACTIONS (3)
  - Alcoholism [None]
  - Drug dependence [None]
  - Dependence [Unknown]
